FAERS Safety Report 8416374-0 (Version None)
Quarter: 2012Q2

REPORT INFORMATION
  Report Type: 
  Country: None (occurrence: None)
  Receive Date: 20120606
  Receipt Date: 20120531
  Transmission Date: 20120825
  Serious: Yes (Death)
  Sender: FDA-Public Use
  Company Number: VE-SANOFI-AVENTIS-2012SA039236

PATIENT
  Sex: Male

DRUGS (7)
  1. IRBESARTAN [Suspect]
     Route: 048
     Dates: end: 20120502
  2. IRBESARTAN [Suspect]
     Indication: HYPERTENSION
     Route: 048
     Dates: end: 20120502
  3. IRBESARTAN [Suspect]
     Route: 048
     Dates: end: 20120502
  4. SOMAZINA [Suspect]
     Route: 048
     Dates: end: 20120502
  5. PLAVIX [Suspect]
     Indication: ANTIPLATELET THERAPY
     Route: 048
     Dates: end: 20120502
  6. PLAVIX [Suspect]
     Route: 048
     Dates: end: 20120502
  7. SOMAZINA [Suspect]
     Indication: NERVOUS SYSTEM DISORDER
     Route: 048
     Dates: end: 20120502

REACTIONS (2)
  - INTESTINAL OBSTRUCTION [None]
  - CEREBROVASCULAR ACCIDENT [None]
